FAERS Safety Report 17325112 (Version 1)
Quarter: 2020Q1

REPORT INFORMATION
  Report Type: Spontaneous
  Country: ES (occurrence: ES)
  Receive Date: 20200127
  Receipt Date: 20200127
  Transmission Date: 20200409
  Serious: Yes (Death, Hospitalization)
  Sender: FDA-Public Use
  Company Number: ES-ACCORD-170772

PATIENT
  Age: 76 Year
  Sex: Male

DRUGS (4)
  1. BEVACIZUMAB. [Interacting]
     Active Substance: BEVACIZUMAB
     Indication: COLORECTAL CANCER METASTATIC
     Route: 042
     Dates: start: 20190812, end: 20190916
  2. CALCIUM FOLINATE [Concomitant]
     Active Substance: LEUCOVORIN CALCIUM
     Indication: COLORECTAL CANCER METASTATIC
     Route: 042
     Dates: start: 20190812, end: 20190916
  3. OXALIPLATIN. [Suspect]
     Active Substance: OXALIPLATIN
     Indication: COLORECTAL CANCER METASTATIC
     Route: 042
     Dates: start: 20190812, end: 20190916
  4. FLUOROURACIL. [Interacting]
     Active Substance: FLUOROURACIL
     Indication: COLORECTAL CANCER METASTATIC
     Route: 042
     Dates: start: 20190812, end: 20190916

REACTIONS (2)
  - Septic shock [Fatal]
  - Drug interaction [Unknown]

NARRATIVE: CASE EVENT DATE: 20190926
